FAERS Safety Report 25820789 (Version 1)
Quarter: 2025Q3

REPORT INFORMATION
  Report Type: Spontaneous
  Country: GB (occurrence: GB)
  Receive Date: 20250919
  Receipt Date: 20250919
  Transmission Date: 20251020
  Serious: Yes (Other)
  Sender: CELLTRION
  Company Number: None

PATIENT

DRUGS (2)
  1. ADALIMUMAB [Suspect]
     Active Substance: ADALIMUMAB
     Indication: Product used for unknown indication
     Dates: start: 20250813
  2. ADALIMUMAB [Suspect]
     Active Substance: ADALIMUMAB

REACTIONS (4)
  - Pyrexia [Not Recovered/Not Resolved]
  - Fatigue [Not Recovered/Not Resolved]
  - Medication error [Unknown]
  - Malaise [Unknown]

NARRATIVE: CASE EVENT DATE: 20250910
